FAERS Safety Report 4616924-6 (Version None)
Quarter: 2005Q1

REPORT INFORMATION
  Report Type: 
  Country: None (occurrence: None)
  Receive Date: 20050321
  Receipt Date: 20050307
  Transmission Date: 20050727
  Serious: Yes (Other)
  Sender: FDA-Public Use
  Company Number: 2004225296AU

PATIENT
  Age: 77 Year
  Sex: Male
  Weight: 80 kg

DRUGS (14)
  1. LIPITOR [Suspect]
     Indication: ILL-DEFINED DISORDER
     Dosage: 10 MG
     Dates: start: 20030113
  2. SOMAC (PANTOPRAZOLE SODIUM) [Suspect]
     Indication: GASTROOESOPHAGEAL REFLUX DISEASE
     Dosage: 40 MG (1 IN 1 D), ORAL
     Route: 048
     Dates: start: 20010508, end: 20040616
  3. ALL OTHER NON-THERAPEUTIC PRODUCTS (ALL OTHER NON-THERAPEUTIC PRODUCTS [Concomitant]
  4. BACTIGRAS (CHLORHEXIDINE DIACETATE, PARAFFIN, LIQUID) [Concomitant]
  5. CELECOXIB (CELECOXIB) [Concomitant]
  6. BETAMETHASONE [Concomitant]
  7. TADALAFIL (TADALAFIL) [Concomitant]
  8. CALCIUM ALGINATE (CALCIUM ALGINATE) [Concomitant]
  9. IRBESARTAN [Concomitant]
  10. FUROSEMIDE [Concomitant]
  11. METAMUCIL-2 [Concomitant]
  12. PRAZOSIN HCL [Concomitant]
  13. RABEPRAZOLE SODIUM [Concomitant]
  14. QUININE BISULFATE (QUININE BISULFATE) [Concomitant]

REACTIONS (7)
  - AGGRESSION [None]
  - CARDIAC DISORDER [None]
  - DIZZINESS [None]
  - DRUG INTERACTION [None]
  - ELECTROCARDIOGRAM QRS COMPLEX PROLONGED [None]
  - LOSS OF CONSCIOUSNESS [None]
  - TRANSIENT ISCHAEMIC ATTACK [None]
